FAERS Safety Report 5674063-X (Version None)
Quarter: 2008Q1

REPORT INFORMATION
  Report Type: 
  Country: None (occurrence: None)
  Receive Date: 20080317
  Receipt Date: 20080303
  Transmission Date: 20080703
  Serious: Yes (Other)
  Sender: FDA-Public Use
  Company Number: 8029857

PATIENT
  Age: 19 Year
  Sex: Female
  Weight: 58 kg

DRUGS (4)
  1. KEPPRA [Suspect]
     Indication: PARTIAL SEIZURES
     Dosage: 2000 MG /D PO
     Route: 048
     Dates: start: 20061001, end: 20071001
  2. KEPPRA [Suspect]
     Indication: PARTIAL SEIZURES
     Dosage: 1000 MG /D PO
     Route: 048
     Dates: start: 20071001, end: 20080201
  3. URBANYL [Concomitant]
  4. SPECIAFOLDINE [Concomitant]

REACTIONS (4)
  - CONGENITAL NOSE MALFORMATION [None]
  - CONGENITAL RENAL CYST [None]
  - DRUG EXPOSURE DURING PREGNANCY [None]
  - FOETAL MALFORMATION [None]
